FAERS Safety Report 17221279 (Version 3)
Quarter: 2020Q1

REPORT INFORMATION
  Report Type: Report from Study
  Country: US (occurrence: US)
  Receive Date: 20191231
  Receipt Date: 20200328
  Transmission Date: 20200409
  Serious: No
  Sender: FDA-Public Use
  Company Number: NVSC2019US027288

PATIENT
  Sex: Female

DRUGS (2)
  1. GILENYA [Suspect]
     Active Substance: FINGOLIMOD HYDROCHLORIDE
     Indication: MULTIPLE SCLEROSIS
     Dosage: 0.5 MG, QD
     Route: 048
  2. GILENYA [Suspect]
     Active Substance: FINGOLIMOD HYDROCHLORIDE
     Dosage: 0.5 MG, QOD
     Route: 048
     Dates: start: 20190919

REACTIONS (11)
  - Laboratory test abnormal [Unknown]
  - Prescribed underdose [Unknown]
  - White blood cell count decreased [Not Recovered/Not Resolved]
  - Onychomycosis [Unknown]
  - Visual impairment [Unknown]
  - Limb discomfort [Recovering/Resolving]
  - Peroneal nerve palsy [Unknown]
  - Fatigue [Unknown]
  - Insomnia [Unknown]
  - Blood pressure diastolic increased [Unknown]
  - Pain in extremity [Unknown]
